FAERS Safety Report 7512527-4 (Version None)
Quarter: 2011Q2

REPORT INFORMATION
  Report Type: 
  Country: None (occurrence: None)
  Receive Date: 20110520
  Receipt Date: 20110513
  Transmission Date: 20111010
  Serious: Yes (Death, Hospitalization)
  Sender: FDA-Public Use
  Company Number: 2011001704

PATIENT
  Age: 77 Year
  Sex: Male
  Weight: 78.2908 kg

DRUGS (19)
  1. ERLOTINIB HYDROCHLORIDE [Suspect]
     Indication: HEAD AND NECK CANCER
     Dosage: 150 MG QD DAILY X42 DAYS, ORAL
     Route: 048
     Dates: start: 20110301, end: 20110406
  2. RADIATION [Suspect]
     Indication: HEAD AND NECK CANCER
     Dosage: DAILY X42 DAYS,
     Dates: start: 20110301, end: 20110406
  3. OXYCODONE HL (OCYCODONE HYDROCHLORIDE) [Concomitant]
  4. ASPIRIN [Concomitant]
  5. MOUTHWASH [Concomitant]
  6. TRANSDERM SCOP [Concomitant]
  7. NORVASC (AMLODIPINE MESILATE [Concomitant]
  8. FOLIC ACID [Concomitant]
  9. PEMETREXED DISODIUM [Suspect]
     Indication: HEAD AND NECK CANCER
     Dosage: 500 MG/M2, EVERY 3 WEEKS, INTRAVENOUS
     Route: 042
     Dates: start: 20110301
  10. FLUCONAZOLE [Concomitant]
  11. TRIAMCINOLONE ACETONIDE [Concomitant]
  12. PREDNISOLONE ACETATE [Concomitant]
  13. LANSOPRAZOLE [Concomitant]
  14. METOPROLOL TARTRATE [Concomitant]
  15. ACTOS [Concomitant]
  16. PROMETHAZINE [Concomitant]
  17. CRESTIOR [Concomitant]
  18. FENOFIBRATE [Concomitant]
  19. NYSTATIN [Concomitant]

REACTIONS (19)
  - DYSPHAGIA [None]
  - SYNCOPE [None]
  - HEAD INJURY [None]
  - HAEMOGLOBIN DECREASED [None]
  - INTESTINAL ISCHAEMIA [None]
  - HYPOTENSION [None]
  - ORTHOSTATIC INTOLERANCE [None]
  - HAEMORRHAGE [None]
  - HAEMODYNAMIC INSTABILITY [None]
  - DEHYDRATION [None]
  - BONE MARROW TRANSPLANT [None]
  - ASPIRATION [None]
  - SEPSIS [None]
  - HYPOPHAGIA [None]
  - HYPONATRAEMIA [None]
  - LACTIC ACIDOSIS [None]
  - PNEUMONIA [None]
  - DECREASED APPETITE [None]
  - LACERATION [None]
